FAERS Safety Report 8843655 (Version 2)
Quarter: 2015Q3

REPORT INFORMATION
  Report Type: Report from Study
  Country: US (occurrence: US)
  Receive Date: 20121016
  Receipt Date: 20150811
  Transmission Date: 20151125
  Serious: Yes (Other)
  Sender: FDA-Public Use
  Company Number: US-ROCHE-1118447

PATIENT
  Sex: Male

DRUGS (2)
  1. NUTROPIN [Suspect]
     Active Substance: SOMATROPIN
     Route: 065
  2. NUTROPIN [Suspect]
     Active Substance: SOMATROPIN
     Indication: HYPERPITUITARISM
     Route: 065
     Dates: start: 1995, end: 1999

REACTIONS (3)
  - Loss of consciousness [Unknown]
  - Respiratory arrest [Unknown]
  - Medication error [Unknown]
